FAERS Safety Report 9676002 (Version 1)
Quarter: 2013Q4

REPORT INFORMATION
  Report Type: Report from Study
  Country: KR (occurrence: KR)
  Receive Date: 20131107
  Receipt Date: 20131107
  Transmission Date: 20140711
  Serious: Yes (Other)
  Sender: FDA-Public Use
  Company Number: PHHY2013KR124532

PATIENT
  Age: 68 Year
  Sex: Male

DRUGS (7)
  1. AMN107 [Suspect]
     Indication: CHRONIC MYELOID LEUKAEMIA
     Dosage: 600 MG, DAILY
     Dates: start: 20130111, end: 20130521
  2. AZEPTIN [Concomitant]
     Indication: HERPES ZOSTER
     Dosage: 1 MG, UNK
     Route: 048
     Dates: start: 20130315, end: 20130522
  3. FOLIC ACID [Concomitant]
     Indication: FOLATE DEFICIENCY
     Dosage: 1 MG, UNK
     Route: 048
     Dates: start: 20130307
  4. AMARYL M [Concomitant]
     Dosage: 1 DF, UNK
     Route: 048
     Dates: start: 20070920
  5. MEGESTROL ACETATE [Concomitant]
     Indication: WEIGHT DECREASED
     Dosage: 5.2 ML, UNK
     Route: 048
     Dates: start: 20130118, end: 20130131
  6. ASACOL [Concomitant]
     Indication: COLITIS ULCERATIVE
     Dosage: 2400 MG, UNK
     Dates: start: 20130307
  7. PREDNICARBATE [Concomitant]
     Indication: HERPES ZOSTER
     Dosage: 60 G, UNK
     Route: 061
     Dates: start: 20130315, end: 20130522

REACTIONS (4)
  - Pain [Recovered/Resolved]
  - Nausea [Recovered/Resolved]
  - Decreased appetite [Recovered/Resolved]
  - Myalgia [Recovered/Resolved]
